FAERS Safety Report 10691836 (Version 1)
Quarter: 2015Q1

REPORT INFORMATION
  Report Type: Spontaneous
  Country: US (occurrence: US)
  Receive Date: 20150105
  Receipt Date: 20150105
  Transmission Date: 20150720
  Serious: No
  Sender: FDA-Public Use
  Company Number: US-GLAXOSMITHKLINE-A1066079A

PATIENT

DRUGS (9)
  1. BABY ASPIRIN [Concomitant]
     Active Substance: ASPIRIN
  2. CINNAMON TABLET [Concomitant]
  3. URSODIOL. [Concomitant]
     Active Substance: URSODIOL
  4. CELEBREX [Concomitant]
     Active Substance: CELECOXIB
  5. LOVAZA [Suspect]
     Active Substance: OMEGA-3-ACID ETHYL ESTERS
     Indication: BLOOD TRIGLYCERIDES INCREASED
     Route: 048
  6. FIBER PILL [Concomitant]
  7. GARLIC PILLS [Concomitant]
  8. ARIMIDEX [Concomitant]
     Active Substance: ANASTROZOLE
  9. WELCHOL [Concomitant]
     Active Substance: COLESEVELAM HYDROCHLORIDE

REACTIONS (2)
  - Alanine aminotransferase increased [Unknown]
  - Aspartate aminotransferase increased [Not Recovered/Not Resolved]
